FAERS Safety Report 4955634-2 (Version None)
Quarter: 2006Q1

REPORT INFORMATION
  Report Type: 
  Country: None (occurrence: None)
  Receive Date: 20060328
  Receipt Date: 20051025
  Transmission Date: 20060701
  Serious: Yes (Hospitalization, Other)
  Sender: FDA-Public Use
  Company Number: US-MERCK-0510USA09186

PATIENT
  Age: 60 Year
  Sex: Female
  Weight: 90 kg

DRUGS (14)
  1. VIOXX [Suspect]
     Indication: ARTHRITIS
     Route: 048
     Dates: start: 19990501, end: 20000901
  2. CARDIZEM [Concomitant]
     Indication: CARDIAC DISORDER
     Route: 065
     Dates: start: 20020101
  3. CARDIZEM [Concomitant]
     Route: 065
     Dates: start: 20020101, end: 20020101
  4. ALDACTAZIDE [Concomitant]
     Indication: OEDEMA
     Route: 065
     Dates: start: 19950101
  5. SPIRONOLACTONE [Concomitant]
     Indication: OEDEMA
     Route: 065
     Dates: start: 19970101
  6. SPIRONOLACTONE [Concomitant]
     Route: 065
     Dates: start: 19970101
  7. ASPIRIN [Concomitant]
     Route: 065
     Dates: start: 20000101, end: 20020101
  8. ASPIRIN [Concomitant]
     Route: 065
     Dates: start: 20020101, end: 20050101
  9. DARVOCET [Concomitant]
     Indication: PAIN
     Route: 065
     Dates: start: 20000101
  10. ROBAXIN [Concomitant]
     Indication: PAIN
     Route: 065
     Dates: start: 20000101
  11. PRAVACHOL [Concomitant]
     Indication: BLOOD CHOLESTEROL INCREASED
     Route: 065
     Dates: start: 19960101, end: 20031204
  12. GABAPENTIN [Concomitant]
     Indication: PAIN
     Route: 065
     Dates: start: 20000101
  13. ESTRACE [Concomitant]
     Indication: HORMONE REPLACEMENT THERAPY
     Route: 065
     Dates: start: 19870101, end: 20030101
  14. LIPITOR [Concomitant]
     Indication: BLOOD CHOLESTEROL INCREASED
     Route: 065

REACTIONS (11)
  - ANGINA PECTORIS [None]
  - BACTERIAL INFECTION [None]
  - CARDIAC DISORDER [None]
  - CHEST PAIN [None]
  - DYSPEPSIA [None]
  - HEADACHE [None]
  - HEART DISEASE CONGENITAL [None]
  - HYPERSENSITIVITY [None]
  - MYOCARDIAL INFARCTION [None]
  - NECK PAIN [None]
  - SHOULDER PAIN [None]
